FAERS Safety Report 5764195-X (Version None)
Quarter: 2008Q2

REPORT INFORMATION
  Report Type: 
  Country: None (occurrence: None)
  Receive Date: 20080610
  Receipt Date: 20080602
  Transmission Date: 20081010
  Serious: Yes (Hospitalization)
  Sender: FDA-Public Use
  Company Number: US-AMGEN-US257979

PATIENT
  Sex: Male

DRUGS (6)
  1. ENBREL [Suspect]
     Indication: PSORIASIS
     Route: 058
     Dates: start: 20061218
  2. ASACOL [Concomitant]
  3. METOPROLOL TARTRATE [Concomitant]
  4. ACETAMINOPHEN AND HYDROCODONE BITARTRATE [Concomitant]
     Route: 048
  5. FEXOFENADINE [Concomitant]
  6. EFFEXOR [Concomitant]

REACTIONS (1)
  - CROHN'S DISEASE [None]
